FAERS Safety Report 18405056 (Version 1)
Quarter: 2020Q4

REPORT INFORMATION
  Report Type: Spontaneous
  Country: GB (occurrence: GB)
  Receive Date: 20201020
  Receipt Date: 20201020
  Transmission Date: 20210114
  Serious: Yes (Other)
  Sender: FDA-Public Use
  Company Number: GB-ASTRAZENECA-2020SF31803

PATIENT

DRUGS (1)
  1. DURVALUMAB. [Suspect]
     Active Substance: DURVALUMAB
     Indication: NON-SMALL CELL LUNG CANCER
     Route: 042

REACTIONS (7)
  - Disease progression [Unknown]
  - Skin toxicity [Unknown]
  - Lower respiratory tract infection [Unknown]
  - COVID-19 [Unknown]
  - Pneumonitis [Unknown]
  - Hepatitis [Unknown]
  - Pericarditis [Unknown]
